FAERS Safety Report 13962502 (Version 1)
Quarter: 2017Q3

REPORT INFORMATION
  Report Type: Spontaneous
  Country: IT (occurrence: IT)
  Receive Date: 20170913
  Receipt Date: 20170913
  Transmission Date: 20171128
  Serious: Yes (Hospitalization)
  Sender: FDA-Public Use
  Company Number: IT-AUROBINDO-AUR-APL-2013-02512

PATIENT

DRUGS (2)
  1. RIVOTRIL [Suspect]
     Active Substance: CLONAZEPAM
     Indication: INSOMNIA
     Dosage: UNK UNK,UNK,,10 ML/TOTAL
     Route: 048
     Dates: start: 20121220, end: 20121220
  2. CITALOPRAM [Suspect]
     Active Substance: CITALOPRAM HYDROBROMIDE
     Indication: INSOMNIA
     Dosage: 120 MG,TOTAL,
     Route: 048
     Dates: start: 20121220, end: 20121220

REACTIONS (5)
  - Intentional overdose [Recovered/Resolved]
  - Bradykinesia [Recovered/Resolved]
  - Intentional product misuse [Recovered/Resolved]
  - Bradyphrenia [Recovered/Resolved]
  - Sopor [Recovered/Resolved]

NARRATIVE: CASE EVENT DATE: 20121220
